FAERS Safety Report 4710576-2 (Version None)
Quarter: 2005Q3

REPORT INFORMATION
  Report Type: 
  Country: None (occurrence: None)
  Receive Date: 20050707
  Receipt Date: 20050428
  Transmission Date: 20060218
  Serious: Yes (Hospitalization)
  Sender: FDA-Public Use
  Company Number: PAR_0099_2005

PATIENT
  Age: 85 Year
  Sex: Female

DRUGS (3)
  1. VERAPAMIL [Suspect]
     Indication: ATRIAL FIBRILLATION
     Dosage: DF PO
     Route: 048
     Dates: start: 20050423
  2. LANSOPRAZOLE [Suspect]
     Indication: REFLUX OESOPHAGITIS
     Dosage: 15 MG PO
     Route: 048
     Dates: start: 20050414, end: 20050423
  3. SOLITA-T3 INJECTION [Suspect]
     Indication: ATRIAL FIBRILLATION
     Dosage: 1 DF QDAY IV
     Route: 042
     Dates: start: 20050423, end: 20050423

REACTIONS (4)
  - ATRIAL FIBRILLATION [None]
  - INJECTION SITE ERYTHEMA [None]
  - INJECTION SITE SWELLING [None]
  - RASH GENERALISED [None]
